FAERS Safety Report 6055508-2 (Version None)
Quarter: 2009Q1

REPORT INFORMATION
  Report Type: 
  Country: None (occurrence: None)
  Receive Date: 20090128
  Receipt Date: 20090127
  Transmission Date: 20090719
  Serious: Yes (Other)
  Sender: FDA-Public Use
  Company Number: A0754274A

PATIENT
  Age: 29 Year
  Sex: Female

DRUGS (2)
  1. WELLBUTRIN XL [Suspect]
     Indication: DEPRESSION
     Dosage: 300MG PER DAY
     Route: 048
     Dates: start: 20050101, end: 20081001
  2. NO CONCURRENT MEDICATION [Concomitant]

REACTIONS (6)
  - BLEPHAROSPASM [None]
  - EYE MOVEMENT DISORDER [None]
  - MYOPIA [None]
  - RETINAL DISORDER [None]
  - RETINAL TEAR [None]
  - VITREOUS DISORDER [None]
